FAERS Safety Report 6523729-8 (Version None)
Quarter: 2009Q4

REPORT INFORMATION
  Report Type: 
  Country: None (occurrence: None)
  Receive Date: 20091231
  Receipt Date: 20091229
  Transmission Date: 20100525
  Serious: Yes (Other)
  Sender: FDA-Public Use
  Company Number: UG-B.I. PHARMACEUTICALS,INC./RIDGEFIELD-2009-BP-14614BP

PATIENT
  Age: 42 Year
  Sex: Female

DRUGS (5)
  1. VIRAMUNE [Suspect]
     Indication: ANTIVIRAL TREATMENT
     Dosage: 400 MG
     Route: 048
     Dates: start: 20080604
  2. TENOFOVIR DISOPROXIL FUMARATE [Suspect]
     Indication: ANTIVIRAL TREATMENT
     Dosage: 300 MG
     Route: 048
     Dates: start: 20080507, end: 20080606
  3. TENOFOVIR DISOPROXIL FUMARATE [Suspect]
     Dosage: 300 MG
     Route: 048
     Dates: start: 20031001, end: 20080312
  4. LAMIVUDINE + ZIDOVUDINE [Suspect]
     Indication: ANTIVIRAL TREATMENT
     Route: 048
     Dates: start: 20080507
  5. LAMIVUDINE + ZIDOVUDINE [Suspect]
     Route: 048
     Dates: start: 20031001, end: 20080312

REACTIONS (1)
  - ABORTION SPONTANEOUS [None]
